FAERS Safety Report 21649087 (Version 10)
Quarter: 2024Q3

REPORT INFORMATION
  Report Type: Report from Study
  Country: CA (occurrence: CA)
  Receive Date: 20221128
  Receipt Date: 20240729
  Transmission Date: 20241017
  Serious: Yes (Other)
  Sender: ROCHE
  Company Number: CA-ROCHE-2322596

PATIENT
  Age: 24 Year
  Sex: Female

DRUGS (12)
  1. OCREVUS [Suspect]
     Active Substance: OCRELIZUMAB
     Indication: Relapsing-remitting multiple sclerosis
     Dosage: 300 MG AT DAY 0 AND 14, THEN 600 MG EVERY 6 MONTHS
     Route: 042
     Dates: start: 20190515
  2. OCREVUS [Suspect]
     Active Substance: OCRELIZUMAB
     Dosage: 300 MG IN 10 ML VIAL
     Route: 042
     Dates: start: 20191209
  3. OCREVUS [Suspect]
     Active Substance: OCRELIZUMAB
     Dosage: 600ML IN 500ML
     Route: 042
     Dates: start: 20200702
  4. VENLAFAXINE [Concomitant]
     Active Substance: VENLAFAXINE HYDROCHLORIDE
     Indication: Anxiety
  5. TOLTERODINE [Concomitant]
     Active Substance: TOLTERODINE
     Indication: Bladder spasm
  6. DALFAMPRIDINE [Concomitant]
     Active Substance: DALFAMPRIDINE
     Dosage: TO IMPROVE WALKING
     Dates: start: 201907
  7. GINKGO [Concomitant]
     Active Substance: GINKGO
  8. EBASTINE [Concomitant]
     Active Substance: EBASTINE
     Indication: Hypersensitivity
     Dosage: FREQUENCY TEXT:DAILY
  9. MICRONOR [Concomitant]
     Active Substance: NORETHINDRONE
     Indication: Contraception
  10. GABAPENTIN [Concomitant]
     Active Substance: GABAPENTIN
     Dosage: FREQUENCY TEXT:WHEN NEEDED
  11. MIRABEGRON [Concomitant]
     Active Substance: MIRABEGRON
  12. BUDESONIDE [Concomitant]
     Active Substance: BUDESONIDE
     Dates: start: 202203

REACTIONS (20)
  - Hemiplegia [Unknown]
  - Infusion related reaction [Recovered/Resolved]
  - Upper respiratory tract infection [Recovered/Resolved]
  - Pain [Not Recovered/Not Resolved]
  - Feeling hot [Not Recovered/Not Resolved]
  - Malaise [Not Recovered/Not Resolved]
  - Infusion related reaction [Recovered/Resolved]
  - Infusion related reaction [Recovered/Resolved]
  - Influenza [Recovering/Resolving]
  - Hypersensitivity [Not Recovered/Not Resolved]
  - Upper-airway cough syndrome [Not Recovered/Not Resolved]
  - Bladder disorder [Unknown]
  - Pyrexia [Recovered/Resolved]
  - Abdominal discomfort [Recovering/Resolving]
  - Diarrhoea [Recovering/Resolving]
  - Headache [Recovering/Resolving]
  - Poor quality sleep [Unknown]
  - Seasonal allergy [Unknown]
  - Acne [Recovering/Resolving]
  - Sinus disorder [Recovered/Resolved]

NARRATIVE: CASE EVENT DATE: 20190515
